FAERS Safety Report 16050794 (Version 1)
Quarter: 2019Q1

REPORT INFORMATION
  Report Type: Spontaneous
  Country: US (occurrence: US)
  Receive Date: 20190308
  Receipt Date: 20190308
  Transmission Date: 20190418
  Serious: No
  Sender: FDA-Public Use
  Company Number: US-PFIZER INC-2019085657

PATIENT
  Age: 31 Year

DRUGS (20)
  1. ZYPREXA [Concomitant]
     Active Substance: OLANZAPINE
     Dosage: UNK
  2. COGENTIN [Concomitant]
     Active Substance: BENZTROPINE MESYLATE
     Dosage: UNK
  3. METFORMIN [Concomitant]
     Active Substance: METFORMIN HYDROCHLORIDE
     Dosage: UNK
  4. TRAZODONE [Concomitant]
     Active Substance: TRAZODONE HYDROCHLORIDE
     Dosage: UNK
  5. INVEGA SUSTENNA [Concomitant]
     Active Substance: PALIPERIDONE PALMITATE
     Dosage: UNK
  6. NAPROXEN. [Concomitant]
     Active Substance: NAPROXEN
     Dosage: UNK
  7. ABILIFY [Concomitant]
     Active Substance: ARIPIPRAZOLE
     Dosage: UNK
  8. PROZAC [Concomitant]
     Active Substance: FLUOXETINE HYDROCHLORIDE
     Dosage: UNK
  9. LITHIUM. [Concomitant]
     Active Substance: LITHIUM
     Dosage: UNK
  10. FISH OIL [Concomitant]
     Active Substance: FISH OIL
     Dosage: UNK
  11. CHANTIX [Suspect]
     Active Substance: VARENICLINE TARTRATE
     Dosage: UNK
     Dates: start: 2006, end: 2008
  12. HALOPERIDOL. [Concomitant]
     Active Substance: HALOPERIDOL
     Dosage: UNK
  13. VISTARIL [HYDROXYZINE EMBONATE] [Concomitant]
     Dosage: UNK
  14. WELLBUTRIN [Concomitant]
     Active Substance: BUPROPION HYDROCHLORIDE
     Dosage: UNK
  15. DEPAKOTE [Concomitant]
     Active Substance: DIVALPROEX SODIUM
     Dosage: UNK
  16. THORAZINE [Concomitant]
     Active Substance: CHLORPROMAZINE
     Dosage: UNK
  17. GEODON [ZIPRASIDONE HYDROCHLORIDE] [Concomitant]
     Dosage: UNK
  18. TRICOR [ADENOSINE] [Concomitant]
     Active Substance: ADENOSINE
     Dosage: UNK
  19. OMEPRAZOLE. [Concomitant]
     Active Substance: OMEPRAZOLE
     Dosage: UNK
  20. ZIPRASIDONE. [Concomitant]
     Active Substance: ZIPRASIDONE
     Dosage: UNK

REACTIONS (1)
  - Abnormal behaviour [Unknown]
